FAERS Safety Report 22191639 (Version 2)
Quarter: 2023Q2

REPORT INFORMATION
  Report Type: Spontaneous
  Country: IT (occurrence: IT)
  Receive Date: 20230410
  Receipt Date: 20230511
  Transmission Date: 20230721
  Serious: Yes (Hospitalization, Other)
  Sender: FDA-Public Use
  Company Number: IT-002147023-NVSC2023IT078362

PATIENT
  Age: 30 Year
  Sex: Female

DRUGS (3)
  1. XOLAIR [Suspect]
     Active Substance: OMALIZUMAB
     Indication: Asthma
     Dosage: UNK (FOR ABOUT 10 MONTHS)
     Route: 065
  2. FOSTER [Concomitant]
     Active Substance: BECLOMETHASONE\FORMOTEROL
     Indication: Product used for unknown indication
     Dosage: 200 2 PUMPS TWICE PER DAY
  3. MONTELUKAST SODIUM [Concomitant]
     Active Substance: MONTELUKAST SODIUM
     Indication: Product used for unknown indication
     Dosage: 1 DOSAGE FORM, QD

REACTIONS (10)
  - Asthma [Unknown]
  - Bronchial oedema [Unknown]
  - Anaphylactic reaction [Unknown]
  - Type I hypersensitivity [Unknown]
  - Wheezing [Unknown]
  - Hyperventilation [Unknown]
  - Chest discomfort [Unknown]
  - Dyspnoea [Unknown]
  - Sneezing [Unknown]
  - Cough [Unknown]
